FAERS Safety Report 12313966 (Version 1)
Quarter: 2016Q2

REPORT INFORMATION
  Report Type: Spontaneous
  Country: US (occurrence: None)
  Receive Date: 20160427
  Receipt Date: 20160427
  Transmission Date: 20160815
  Serious: Yes (Death)
  Sender: FDA-Public Use
  Company Number: None

PATIENT
  Age: 91 Year
  Sex: Female

DRUGS (1)
  1. ASPIRIN, 81 MG [Suspect]
     Active Substance: ASPIRIN
     Route: 048

REACTIONS (3)
  - Fall [None]
  - Head injury [None]
  - Cerebral haemorrhage [None]

NARRATIVE: CASE EVENT DATE: 20150227
